FAERS Safety Report 19635378 (Version 2)
Quarter: 2021Q3

REPORT INFORMATION
  Report Type: Report from Study
  Country: CA (occurrence: CA)
  Receive Date: 20210729
  Receipt Date: 20210819
  Transmission Date: 20211014
  Serious: Yes (Death, Hospitalization)
  Sender: FDA-Public Use
  Company Number: NVSC2021CA165342

PATIENT
  Age: 77 Year
  Sex: Male

DRUGS (3)
  1. SANDOSTATIN LAR DEPOT [Suspect]
     Active Substance: OCTREOTIDE ACETATE
     Indication: CARCINOID TUMOUR
     Dosage: 30 MG, QMO (4 WEEKS)
     Route: 030
     Dates: start: 20210428
  2. SANDOSTATIN LAR DEPOT [Suspect]
     Active Substance: OCTREOTIDE ACETATE
  3. SANDOSTATIN LAR DEPOT [Suspect]
     Active Substance: OCTREOTIDE ACETATE

REACTIONS (7)
  - Asthenia [Unknown]
  - Syncope [Unknown]
  - Hypotonia [Unknown]
  - Diarrhoea [Not Recovered/Not Resolved]
  - Death [Fatal]
  - Muscle atrophy [Unknown]
  - Weight decreased [Unknown]

NARRATIVE: CASE EVENT DATE: 20210709
